FAERS Safety Report 6291452-3 (Version None)
Quarter: 2009Q3

REPORT INFORMATION
  Report Type: 
  Country: None (occurrence: None)
  Receive Date: 20090729
  Receipt Date: 20090729
  Transmission Date: 20100115
  Serious: Yes (Other)
  Sender: FDA-Public Use
  Company Number: None

PATIENT
  Sex: Male
  Weight: 70 kg

DRUGS (13)
  1. ECULIZUMAB 300MG PER 30ML VIAL -10/MG/ML- ALEXION PHARMACEUTICALS, [Suspect]
     Indication: ANTIPHOSPHOLIPID SYNDROME
     Dosage: 1200MG ONCE IV BOLUS; 900 MG TWO DOSES IV BOLUS
     Route: 040
  2. HEPARIN [Concomitant]
  3. DACLIZUMAB [Concomitant]
  4. DEXAMETHASONE [Concomitant]
  5. PREDNISONE [Concomitant]
  6. RAPAMUNE [Concomitant]
  7. MYCOPHENOLATE MOFETIL [Concomitant]
  8. GANCICLOVIR [Concomitant]
  9. VALGANCICLOVIR HCL [Concomitant]
  10. CIPROFLOXACIN HYDROCHLORIDE [Concomitant]
  11. NIFEDIPINE [Concomitant]
  12. FENTANYL [Concomitant]
  13. TOPIRAMATE [Concomitant]

REACTIONS (6)
  - BACK PAIN [None]
  - FLANK PAIN [None]
  - HAEMOGLOBIN DECREASED [None]
  - HAEMORRHAGE [None]
  - PROTHROMBIN TIME RATIO INCREASED [None]
  - RETROPERITONEAL HAEMATOMA [None]
